FAERS Safety Report 15160464 (Version 4)
Quarter: 2018Q3

REPORT INFORMATION
  Report Type: Report from Study
  Country: US (occurrence: US)
  Receive Date: 20180718
  Receipt Date: 20180910
  Transmission Date: 20181010
  Serious: Yes (Hospitalization)
  Sender: FDA-Public Use
  Company Number: US-ACTELION-A-NJ2018-175637

PATIENT
  Age: 73 Year
  Sex: Female
  Weight: 54.88 kg

DRUGS (5)
  1. VENTAVIS [Suspect]
     Active Substance: ILOPROST
     Dosage: 5.0 MCG, 3 TO 9 TIMES PER DAY
     Route: 055
  2. LETAIRIS [Concomitant]
     Active Substance: AMBRISENTAN
     Dosage: UNK
     Dates: end: 201807
  3. OPSUMIT [Suspect]
     Active Substance: MACITENTAN
     Indication: PULMONARY ARTERIAL HYPERTENSION
     Dosage: 10 MG, QD
     Route: 048
  4. DILTIAZEM. [Concomitant]
     Active Substance: DILTIAZEM
  5. VENTAVIS [Suspect]
     Active Substance: ILOPROST
     Indication: PULMONARY ARTERIAL HYPERTENSION
     Dosage: 5.0 MCG, 6 TO 9 TIMES PER DAY
     Route: 055

REACTIONS (8)
  - Exercise tolerance decreased [Unknown]
  - Implantable cardiac monitor insertion [Unknown]
  - Malaise [Unknown]
  - Drug dose omission [Unknown]
  - Dyspnoea [Unknown]
  - Syncope [Unknown]
  - Dehydration [Unknown]
  - Chest injury [Unknown]
